FAERS Safety Report 5335474-5 (Version None)
Quarter: 2007Q2

REPORT INFORMATION
  Report Type: 
  Country: None (occurrence: None)
  Receive Date: 20070525
  Receipt Date: 20070517
  Transmission Date: 20071010
  Serious: Yes (Other)
  Sender: FDA-Public Use
  Company Number: AU-PFIZER INC-2007040485

PATIENT
  Age: 45 Year
  Sex: Male

DRUGS (3)
  1. DILANTIN [Suspect]
  2. DILANTIN [Suspect]
  3. MYSOLINE [Suspect]

REACTIONS (9)
  - ARTHRALGIA [None]
  - CALCIUM DEFICIENCY [None]
  - CONFUSIONAL STATE [None]
  - CONJUNCTIVAL DISCOLOURATION [None]
  - DYSARTHRIA [None]
  - FATIGUE [None]
  - GINGIVAL SWELLING [None]
  - NECK PAIN [None]
  - VITAMIN D ABNORMAL [None]
